FAERS Safety Report 20179221 (Version 1)
Quarter: 2021Q4

REPORT INFORMATION
  Report Type: Spontaneous
  Country: US (occurrence: US)
  Receive Date: 20211214
  Receipt Date: 20211214
  Transmission Date: 20220303
  Serious: No
  Sender: FDA-Public Use
  Company Number: US-ELI_LILLY_AND_COMPANY-US202112005902

PATIENT
  Sex: Male

DRUGS (8)
  1. HUMULIN R U-500 [Suspect]
     Active Substance: INSULIN HUMAN
     Indication: Type 2 diabetes mellitus
     Dosage: 200 U, EACH MORNING
     Route: 065
     Dates: start: 2016
  2. HUMULIN R U-500 [Suspect]
     Active Substance: INSULIN HUMAN
     Indication: Type 2 diabetes mellitus
     Dosage: 200 U, EACH MORNING
     Route: 065
     Dates: start: 2016
  3. HUMULIN R U-500 [Suspect]
     Active Substance: INSULIN HUMAN
     Dosage: 180 U, EACH EVENING
     Route: 065
     Dates: start: 2016
  4. HUMULIN R U-500 [Suspect]
     Active Substance: INSULIN HUMAN
     Dosage: 180 U, EACH EVENING
     Route: 065
     Dates: start: 2016
  5. HUMULIN R U-500 [Suspect]
     Active Substance: INSULIN HUMAN
     Dosage: 200 U, EACH MORNING
     Route: 065
  6. HUMULIN R U-500 [Suspect]
     Active Substance: INSULIN HUMAN
     Dosage: 200 U, EACH MORNING
     Route: 065
  7. HUMULIN R U-500 [Suspect]
     Active Substance: INSULIN HUMAN
     Dosage: 180 U, EACH EVENING
     Route: 065
     Dates: start: 2016
  8. HUMULIN R U-500 [Suspect]
     Active Substance: INSULIN HUMAN
     Dosage: 180 U, EACH EVENING
     Route: 065
     Dates: start: 2016

REACTIONS (6)
  - Blood glucose increased [Not Recovered/Not Resolved]
  - Disorientation [Unknown]
  - Confusional state [Unknown]
  - Headache [Unknown]
  - Mental disorder [Unknown]
  - Product storage error [Unknown]
